FAERS Safety Report 25917965 (Version 1)
Quarter: 2025Q4

REPORT INFORMATION
  Report Type: Report from Study
  Country: US (occurrence: US)
  Receive Date: 20251014
  Receipt Date: 20251014
  Transmission Date: 20260118
  Serious: Yes (Other)
  Sender: REGENERON
  Company Number: US-REGENERON PHARMACEUTICALS, INC.-2025-160682

PATIENT
  Sex: Male

DRUGS (1)
  1. EYLEA HD [Suspect]
     Active Substance: AFLIBERCEPT
     Indication: Diabetic retinal oedema
     Dosage: 8 MG, SINGLE SAMPLE DOSE, LEFT EYE (FORMULATION: HD VIAL)
     Dates: start: 20250812, end: 20250812

REACTIONS (6)
  - Blindness transient [Recovering/Resolving]
  - Headache [Recovered/Resolved]
  - Eye discharge [Recovered/Resolved]
  - Eye swelling [Recovered/Resolved]
  - Eye pain [Recovered/Resolved]
  - Vitreous floaters [Recovered/Resolved]

NARRATIVE: CASE EVENT DATE: 20250812
